FAERS Safety Report 4865169-3 (Version None)
Quarter: 2005Q4

REPORT INFORMATION
  Report Type: 
  Country: None (occurrence: None)
  Receive Date: 20051221
  Receipt Date: 20051221
  Transmission Date: 20060501
  Serious: Yes (Disabling)
  Sender: FDA-Public Use
  Company Number: None

PATIENT
  Age: 21 Year
  Sex: Male
  Weight: 79.3795 kg

DRUGS (1)
  1. ACCUTANE [Suspect]
     Indication: ACNE
     Dosage: 40 MG   TWICE A DAY  PO
     Route: 048

REACTIONS (15)
  - ARTHRALGIA [None]
  - ASTHENIA [None]
  - BONE PAIN [None]
  - CHROMATURIA [None]
  - DRY EYE [None]
  - DRY SKIN [None]
  - EYE PAIN [None]
  - FAECES HARD [None]
  - HAIR TEXTURE ABNORMAL [None]
  - IMPAIRED DRIVING ABILITY [None]
  - NASAL DRYNESS [None]
  - RECTAL HAEMORRHAGE [None]
  - SOMNOLENCE [None]
  - VISION BLURRED [None]
  - VISUAL DISTURBANCE [None]
